FAERS Safety Report 6749367-X (Version None)
Quarter: 2010Q2

REPORT INFORMATION
  Report Type: 
  Country: None (occurrence: None)
  Receive Date: 20100527
  Receipt Date: 20100527
  Transmission Date: 20101027
  Serious: Yes (Life-Threatening, Hospitalization, Disabling, Other)
  Sender: FDA-Public Use
  Company Number: None

PATIENT
  Age: 14 Year
  Sex: Male
  Weight: 36.2878 kg

DRUGS (1)
  1. GRIFULVIN V [Suspect]
     Indication: FUNGAL SKIN INFECTION
     Dosage: 1 TAB 500 MG ONCE DAILY 30 DAYS MOUTH
     Dates: start: 20100113, end: 20100213

REACTIONS (5)
  - AMNESIA [None]
  - DECREASED APPETITE [None]
  - DIZZINESS [None]
  - MENTAL DISORDER [None]
  - PARAESTHESIA [None]
